FAERS Safety Report 18162679 (Version 2)
Quarter: 2020Q3

REPORT INFORMATION
  Report Type: Spontaneous
  Country: US (occurrence: US)
  Receive Date: 20200818
  Receipt Date: 20200819
  Transmission Date: 20201103
  Serious: Yes (Hospitalization, Other)
  Sender: FDA-Public Use
  Company Number: US-PFIZER INC-2020317893

PATIENT
  Age: 78 Year
  Sex: Female

DRUGS (1)
  1. XELJANZ XR [Suspect]
     Active Substance: TOFACITINIB CITRATE
     Indication: RHEUMATOID ARTHRITIS
     Dosage: 11 MG, DAILY
     Route: 048
     Dates: start: 20200501, end: 20200613

REACTIONS (4)
  - Staphylococcal bacteraemia [Unknown]
  - Peripheral swelling [Unknown]
  - Pain in extremity [Unknown]
  - Eye infection staphylococcal [Unknown]

NARRATIVE: CASE EVENT DATE: 2020
